FAERS Safety Report 5217821-8 (Version None)
Quarter: 2007Q1

REPORT INFORMATION
  Report Type: 
  Country: None (occurrence: None)
  Receive Date: 20070124
  Receipt Date: 20070119
  Transmission Date: 20070707
  Serious: Yes (Hospitalization)
  Sender: FDA-Public Use
  Company Number: FR-BOEHRINGER INGELHEIM PHARMACEUTICALS, INC.-2007-FF-00079FF

PATIENT
  Sex: Male
  Weight: 1.2 kg

DRUGS (2)
  1. CATAPRES [Suspect]
     Indication: HYPERTENSION
     Dosage: 40 ?G/15ML AT 0,1 ML/MIN
     Route: 042
     Dates: start: 20061104
  2. CATAPRES [Suspect]
     Dosage: 40 ?G/15ML AT 1 ML/MIN
     Route: 042
     Dates: start: 20061113

REACTIONS (4)
  - BLOOD PRESSURE DECREASED [None]
  - HYPOTONIA [None]
  - LOSS OF CONSCIOUSNESS [None]
  - OVERDOSE [None]
